FAERS Safety Report 9593614 (Version 2)
Quarter: 2013Q4

REPORT INFORMATION
  Report Type: Spontaneous
  Country: US (occurrence: US)
  Receive Date: 20131004
  Receipt Date: 20131004
  Transmission Date: 20140711
  Serious: No
  Sender: FDA-Public Use
  Company Number: US-PURDUE-USA-2012-0090021

PATIENT
  Sex: Female

DRUGS (1)
  1. BUTRANS [Suspect]
     Indication: PAIN
     Dosage: 5 MCG/HR, UNK
     Route: 062
     Dates: start: 201206

REACTIONS (6)
  - Apathy [Unknown]
  - Application site paraesthesia [Recovered/Resolved]
  - Dry mouth [Unknown]
  - Headache [Unknown]
  - Drug effect decreased [Unknown]
  - Feeling abnormal [Unknown]
